FAERS Safety Report 5390892-4 (Version None)
Quarter: 2007Q3

REPORT INFORMATION
  Report Type: 
  Country: None (occurrence: None)
  Receive Date: 20070716
  Receipt Date: 20070710
  Transmission Date: 20080115
  Serious: Yes (Hospitalization)
  Sender: FDA-Public Use
  Company Number: 07US000900

PATIENT
  Age: 17 Year
  Sex: Male
  Weight: 106 kg

DRUGS (3)
  1. LITHIUM CARBONATE [Suspect]
     Indication: DEPRESSION
     Dosage: SEE IMAGE
     Route: 048
     Dates: end: 20060608
  2. LITHIUM CARBONATE [Suspect]
     Indication: DEPRESSION
     Dosage: SEE IMAGE
     Route: 048
     Dates: start: 20060608
  3. EFEEXOR-XR (VENLAFAXINE HYDROCHLORIDE) [Concomitant]

REACTIONS (8)
  - DEPRESSED MOOD [None]
  - FLAT AFFECT [None]
  - POOR QUALITY SLEEP [None]
  - SELF ESTEEM DECREASED [None]
  - SLEEP DISORDER [None]
  - SOCIAL AVOIDANT BEHAVIOUR [None]
  - SUICIDAL IDEATION [None]
  - SUICIDE ATTEMPT [None]
